APPROVED DRUG PRODUCT: FUROSEMIDE
Active Ingredient: FUROSEMIDE
Strength: 10MG/ML
Dosage Form/Route: INJECTABLE;INJECTION
Application: A074017 | Product #001
Applicant: MARSAM PHARMACEUTICALS LLC
Approved: Jun 30, 1994 | RLD: No | RS: No | Type: DISCN